FAERS Safety Report 8327938-7 (Version None)
Quarter: 2012Q2

REPORT INFORMATION
  Report Type: 
  Country: None (occurrence: None)
  Receive Date: 20120502
  Receipt Date: 20120424
  Transmission Date: 20120825
  Serious: Yes (Hospitalization)
  Sender: FDA-Public Use
  Company Number: JP-ELI_LILLY_AND_COMPANY-JP201204008831

PATIENT
  Sex: Female
  Weight: 40 kg

DRUGS (33)
  1. ZOLOFT [Concomitant]
     Dosage: 100 MG, QD
     Dates: end: 20101028
  2. ZOLOFT [Concomitant]
     Dosage: 75 MG, QD
     Dates: start: 20101029, end: 20101104
  3. NORTRIPTYLINE HCL [Concomitant]
     Dosage: 100 MG, QD
     Dates: start: 20101203, end: 20101223
  4. NORTRIPTYLINE HCL [Concomitant]
     Dosage: 50 MG, QD
     Dates: start: 20110610
  5. DULOXETINE HYDROCHLORIDE [Suspect]
     Indication: DEPRESSION
     Dosage: 20 MG, QD
     Route: 048
     Dates: start: 20101015, end: 20101021
  6. DULOXETINE HYDROCHLORIDE [Suspect]
     Dosage: 30 MG, QD
     Route: 048
     Dates: start: 20101022, end: 20101028
  7. NORTRIPTYLINE HCL [Concomitant]
     Dosage: 50 MG, QD
     Dates: start: 20101119, end: 20101125
  8. NORTRIPTYLINE HCL [Concomitant]
     Dosage: 50 MG, QD
     Dates: start: 20110530, end: 20110601
  9. NITRAZEPAM [Concomitant]
     Dosage: 5 MG, QD
     Dates: start: 20110603
  10. DULOXETINE HYDROCHLORIDE [Suspect]
     Dosage: 60 MG, QD
     Route: 048
     Dates: start: 20101112, end: 20110217
  11. DULOXETINE HYDROCHLORIDE [Suspect]
     Dosage: 30 MG, QD
     Route: 048
     Dates: start: 20110627, end: 20110704
  12. NORTRIPTYLINE HCL [Concomitant]
     Dosage: 25 MG, QD
     Dates: start: 20101105, end: 20101118
  13. NORTRIPTYLINE HCL [Concomitant]
     Dosage: 75 MG, QD
     Dates: start: 20101224, end: 20110127
  14. NORTRIPTYLINE HCL [Concomitant]
     Dosage: 62.5 MG, QD
     Dates: start: 20110602, end: 20110609
  15. SEROQUEL [Concomitant]
     Indication: SLEEP DISORDER
     Dosage: 25 MG, QD
     Dates: end: 20101126
  16. DULOXETINE HYDROCHLORIDE [Suspect]
     Dosage: 30 MG, QD
     Route: 048
     Dates: start: 20110311, end: 20110407
  17. DULOXETINE HYDROCHLORIDE [Suspect]
     Dosage: 40 MG, QD
     Route: 048
     Dates: start: 20110408, end: 20110418
  18. RISPERDAL [Concomitant]
     Dosage: 2 MG, QD
     Dates: start: 20110525, end: 20110708
  19. NORTRIPTYLINE HCL [Concomitant]
     Dosage: 50 MG, QD
     Dates: start: 20110128, end: 20110203
  20. NORTRIPTYLINE HCL [Concomitant]
     Dosage: 25 MG, QD
     Dates: start: 20110527, end: 20110529
  21. DULOXETINE HYDROCHLORIDE [Suspect]
     Dosage: 40 MG, QD
     Route: 048
     Dates: start: 20110624, end: 20110626
  22. LORAZEPAM [Concomitant]
     Dosage: 1 MG, QD
     Dates: start: 20101224, end: 20110128
  23. LORAZEPAM [Concomitant]
     Dosage: 2 MG, QD
     Dates: start: 20110610
  24. RISPERDAL [Concomitant]
     Indication: HALLUCINATION
     Dosage: 1 MG, QD
     Dates: start: 20110524, end: 20110524
  25. DULOXETINE HYDROCHLORIDE [Suspect]
     Dosage: 40 MG, QD
     Route: 048
     Dates: start: 20101029, end: 20101111
  26. DULOXETINE HYDROCHLORIDE [Suspect]
     Dosage: 60 MG, QD
     Route: 048
     Dates: start: 20110419, end: 20110623
  27. DULOXETINE HYDROCHLORIDE [Suspect]
     Dosage: 20 MG, QD
     Route: 048
     Dates: start: 20110705, end: 20110708
  28. NORTRIPTYLINE HCL [Concomitant]
     Dosage: 75 MG, QD
     Dates: start: 20101126, end: 20101202
  29. NORTRIPTYLINE HCL [Concomitant]
     Dosage: 12.5 MG, QD
     Dates: start: 20110311, end: 20110525
  30. DULOXETINE HYDROCHLORIDE [Suspect]
     Dosage: 40 MG, QD
     Route: 048
     Dates: start: 20110218, end: 20110310
  31. ZOLOFT [Concomitant]
     Dosage: 50 MG, QD
     Dates: start: 20101105, end: 20101112
  32. ZOLOFT [Concomitant]
     Dosage: 24 MG, QD
     Dates: start: 20101113, end: 20101119
  33. NORTRIPTYLINE HCL [Concomitant]
     Dosage: 25 MG, QD
     Dates: start: 20110204, end: 20110310

REACTIONS (3)
  - DELUSION [None]
  - BIPOLAR I DISORDER [None]
  - SUBILEUS [None]
